FAERS Safety Report 5495361-9 (Version None)
Quarter: 2007Q4

REPORT INFORMATION
  Report Type: 
  Country: None (occurrence: None)
  Receive Date: 20071024
  Receipt Date: 20071019
  Transmission Date: 20080405
  Serious: Yes (Hospitalization)
  Sender: FDA-Public Use
  Company Number: JP-MERCK-0710USA04527

PATIENT
  Age: 57 Year
  Sex: Female

DRUGS (6)
  1. PEPCID RPD [Suspect]
     Indication: GASTRIC ULCER
     Route: 048
     Dates: start: 20070720, end: 20071012
  2. EXCEGRAN [Suspect]
     Route: 048
  3. SYMMETREL [Concomitant]
     Route: 048
  4. MYONAL [Concomitant]
     Route: 048
  5. PANTOSIN [Concomitant]
     Route: 048
  6. MAGNESIUM OXIDE [Concomitant]
     Route: 048

REACTIONS (2)
  - DYSKINESIA [None]
  - NYSTAGMUS [None]
